FAERS Safety Report 17397185 (Version 1)
Quarter: 2020Q1

REPORT INFORMATION
  Report Type: Spontaneous
  Country: US (occurrence: US)
  Receive Date: 20200210
  Receipt Date: 20200210
  Transmission Date: 20200409
  Serious: Yes (Death)
  Sender: FDA-Public Use
  Company Number: US-PFIZER INC-2020057337

PATIENT
  Age: 84 Year
  Sex: Female
  Weight: 52 kg

DRUGS (7)
  1. VYNDAQEL [Suspect]
     Active Substance: TAFAMIDIS MEGLUMINE
     Indication: CARDIAC AMYLOIDOSIS
     Dosage: 80 MG, 1X/DAY [20 MG, FOUR CAPSULES ONE TIME DAILY]
     Dates: start: 20191001
  2. CITALOPRAM [Concomitant]
     Active Substance: CITALOPRAM HYDROBROMIDE
     Dosage: 10 MG, 1X/DAY
  3. BUMEX [Concomitant]
     Active Substance: BUMETANIDE
     Dosage: 1 MG, 2X/DAY
  4. COLCHICINE. [Concomitant]
     Active Substance: COLCHICINE
     Dosage: 0.6 MG, DAILY
  5. SPIRONOLACTONE. [Concomitant]
     Active Substance: SPIRONOLACTONE
     Dosage: 25 MG, DAILY
  6. BABY ASPIRIN [Concomitant]
     Active Substance: ASPIRIN
     Dosage: 81 MG, 1X/DAY
  7. POTASSIUM CHLORIDE. [Concomitant]
     Active Substance: POTASSIUM CHLORIDE
     Dosage: 20 MEQ, DAILY

REACTIONS (2)
  - Cardiac failure [Fatal]
  - Failure to thrive [Fatal]

NARRATIVE: CASE EVENT DATE: 20191009
